FAERS Safety Report 12818569 (Version 3)
Quarter: 2016Q4

REPORT INFORMATION
  Report Type: Spontaneous
  Country: JP (occurrence: JP)
  Receive Date: 20161006
  Receipt Date: 20161027
  Transmission Date: 20170207
  Serious: Yes (Hospitalization, Other)
  Sender: FDA-Public Use
  Company Number: PHJP2016JP022660

PATIENT
  Age: 67 Year
  Sex: Male

DRUGS (2)
  1. AFINITOR [Suspect]
     Active Substance: EVEROLIMUS
     Indication: PANCREATIC NEUROENDOCRINE TUMOUR
     Dosage: 10 MG, QD
     Route: 048
     Dates: start: 20160722
  2. AZULENE [Concomitant]
     Active Substance: AZULENE
     Indication: PRODUCT USED FOR UNKNOWN INDICATION
     Dosage: UNK
     Route: 065
     Dates: start: 20160722

REACTIONS (3)
  - Femur fracture [Recovering/Resolving]
  - Fall [Unknown]
  - Stomatitis [Recovered/Resolved]

NARRATIVE: CASE EVENT DATE: 201607
